FAERS Safety Report 13720789 (Version 3)
Quarter: 2019Q3

REPORT INFORMATION
  Report Type: Report from Study
  Country: US (occurrence: US)
  Receive Date: 20170706
  Receipt Date: 20190801
  Transmission Date: 20191004
  Serious: Yes (Disabling)
  Sender: FDA-Public Use
  Company Number: US-SA-2017SA115329

PATIENT
  Age: 55 Year
  Sex: Female
  Weight: 97 kg

DRUGS (3)
  1. INSULIN GLARGINE [Suspect]
     Active Substance: INSULIN GLARGINE
     Dosage: 40 U, DAILY IN THE EVENING
  2. INSULIN GLARGINE [Suspect]
     Active Substance: INSULIN GLARGINE
     Indication: DIABETES MELLITUS
     Dosage: 34 DF, HS
  3. NOVOLOG [Concomitant]
     Active Substance: INSULIN ASPART
     Indication: DIABETES MELLITUS
     Dosage: UNK UNK,UNK
     Dates: start: 2016

REACTIONS (6)
  - Visual impairment [Not Recovered/Not Resolved]
  - Product use issue [Unknown]
  - Eye haemorrhage [Unknown]
  - Throat clearing [Not Recovered/Not Resolved]
  - Vitreous floaters [Unknown]
  - Eye infection [Unknown]

NARRATIVE: CASE EVENT DATE: 201612
